FAERS Safety Report 8561177-X (Version None)
Quarter: 2012Q3

REPORT INFORMATION
  Report Type: 
  Country: None (occurrence: None)
  Receive Date: 20120802
  Receipt Date: 20120725
  Transmission Date: 20120928
  Serious: Yes (Disabling)
  Sender: FDA-Public Use
  Company Number: AU-ACTELION-A-CH2012-67201

PATIENT
  Age: 77 Year
  Sex: Female
  Weight: 70 kg

DRUGS (8)
  1. TEMAZEPAM [Concomitant]
  2. PREDNISOLONE [Concomitant]
  3. TRACLEER [Suspect]
     Indication: PULMONARY ARTERIAL HYPERTENSION
     Dosage: 62.5 MG, BID
     Route: 048
     Dates: start: 20120301, end: 20120711
  4. ADALAT [Concomitant]
  5. ZOCOR [Concomitant]
  6. ASPIRIN [Concomitant]
  7. RABEPRAZOLE SODIUM [Concomitant]
  8. PANAMAX [Concomitant]

REACTIONS (4)
  - JOINT RANGE OF MOTION DECREASED [None]
  - ARTHRALGIA [None]
  - MYALGIA [None]
  - POLYARTHRITIS [None]
